FAERS Safety Report 12682121 (Version 1)
Quarter: 2016Q3

REPORT INFORMATION
  Report Type: Spontaneous
  Country: US (occurrence: US)
  Receive Date: 20160824
  Receipt Date: 20160824
  Transmission Date: 20161109
  Serious: No
  Sender: FDA-Public Use
  Company Number: US-JUBILANT HOLLISTERSTIER LLC-1056717

PATIENT
  Age: 6 Year
  Sex: Female

DRUGS (2)
  1. MOLDS, RUSTS AND SMUTS, CANDIDA ALBICANS [Suspect]
     Active Substance: CANDIDA ALBICANS
     Indication: OFF LABEL USE
     Route: 026
     Dates: start: 20160104, end: 20160104
  2. LIDOCAINE. [Concomitant]
     Active Substance: LIDOCAINE
     Route: 026
     Dates: start: 20160104, end: 20160104

REACTIONS (5)
  - Skin exfoliation [Recovered/Resolved]
  - Swelling [Recovered/Resolved]
  - Erythema [Recovered/Resolved]
  - Injection site hypoaesthesia [Recovered/Resolved]
  - Pain [Recovered/Resolved]

NARRATIVE: CASE EVENT DATE: 20160105
